FAERS Safety Report 4780916-7 (Version None)
Quarter: 2005Q3

REPORT INFORMATION
  Report Type: 
  Country: None (occurrence: None)
  Receive Date: 20050926
  Receipt Date: 20050926
  Transmission Date: 20060218
  Serious: Yes (Other)
  Sender: FDA-Public Use
  Company Number: None

PATIENT
  Age: 70 Year
  Sex: Male
  Weight: 107.5 kg

DRUGS (8)
  1. ZETIA [Suspect]
     Indication: HYPERCHOLESTEROLAEMIA
     Dates: start: 20050425, end: 20050615
  2. ACETAMINOPHEN [Concomitant]
  3. BACITRACIN [Concomitant]
  4. CANDESARTAN CILEXETIL [Concomitant]
  5. CLONIDINE HCL [Concomitant]
  6. COLCHICINE [Concomitant]
  7. DOCUSATE [Concomitant]
  8. STOOL SOFTENER [Concomitant]

REACTIONS (4)
  - ASTHENIA [None]
  - DEPRESSED MOOD [None]
  - MUSCLE SPASMS [None]
  - SOMNOLENCE [None]
